FAERS Safety Report 7431201-6 (Version None)
Quarter: 2011Q2

REPORT INFORMATION
  Report Type: 
  Country: None (occurrence: None)
  Receive Date: 20110421
  Receipt Date: 20090819
  Transmission Date: 20111010
  Serious: Yes (Other)
  Sender: FDA-Public Use
  Company Number: DE-GENENTECH-317151

PATIENT
  Age: 76 Year
  Sex: Female

DRUGS (2)
  1. SWINE FLU VACCINE [Concomitant]
     Indication: PRODUCT USED FOR UNKNOWN INDICATION
  2. LUCENTIS [Suspect]
     Indication: MACULAR DEGENERATION
     Dosage: UNK
     Route: 031

REACTIONS (11)
  - ASTHENIA [None]
  - INJECTION SITE PAIN [None]
  - VISUAL ACUITY REDUCED [None]
  - INTRAOCULAR PRESSURE INCREASED [None]
  - ABASIA [None]
  - BLOOD GLUCOSE ABNORMAL [None]
  - BACK PAIN [None]
  - CARDIOVASCULAR DISORDER [None]
  - TEMPERATURE INTOLERANCE [None]
  - NASOPHARYNGITIS [None]
  - GASTROINTESTINAL DISORDER [None]
